FAERS Safety Report 16844691 (Version 1)
Quarter: 2019Q3

REPORT INFORMATION
  Report Type: Spontaneous
  Country: US (occurrence: US)
  Receive Date: 20190802
  Receipt Date: 20190802
  Transmission Date: 20191005
  Serious: No
  Sender: FDA-Public Use
  Company Number: None

PATIENT

DRUGS (2)
  1. UDENYCA [Suspect]
     Active Substance: PEGFILGRASTIM-CBQV
     Route: 058
  2. PROLIA [Suspect]
     Active Substance: DENOSUMAB
     Route: 058

REACTIONS (3)
  - Product packaging confusion [None]
  - Product label confusion [None]
  - Wrong product stored [None]
